FAERS Safety Report 21754984 (Version 2)
Quarter: 2023Q1

REPORT INFORMATION
  Report Type: Spontaneous
  Country: US (occurrence: US)
  Receive Date: 20221220
  Receipt Date: 20230117
  Transmission Date: 20230418
  Serious: No
  Sender: FDA-Public Use
  Company Number: US-BAYER-2022A170679

PATIENT
  Age: 69 Year
  Sex: Female

DRUGS (2)
  1. KERENDIA [Suspect]
     Active Substance: FINERENONE
     Indication: Type 2 diabetes mellitus
     Dosage: UNK
     Dates: start: 202211, end: 202212
  2. DIOVAN [Suspect]
     Active Substance: VALSARTAN
     Dosage: UNK

REACTIONS (8)
  - Peripheral coldness [Recovered/Resolved]
  - Urinary straining [Recovered/Resolved]
  - Pollakiuria [Recovered/Resolved]
  - Urine abnormality [Recovered/Resolved]
  - Bladder pain [Recovered/Resolved]
  - Hot flush [None]
  - Myalgia [None]
  - Off label use [None]

NARRATIVE: CASE EVENT DATE: 20221101
